FAERS Safety Report 4452446-3 (Version None)
Quarter: 2004Q3

REPORT INFORMATION
  Report Type: 
  Country: None (occurrence: None)
  Receive Date: 20040917
  Receipt Date: 20040907
  Transmission Date: 20050211
  Serious: Yes (Other)
  Sender: FDA-Public Use
  Company Number: PHBS2004JP11956

PATIENT
  Age: 86 Year
  Sex: Female

DRUGS (3)
  1. VOLTAREN-XR [Suspect]
     Indication: PAIN
     Dosage: 75 MG/DAY
     Route: 048
     Dates: start: 20040823
  2. VOLTAREN-XR [Suspect]
     Dosage: 75 MG/DAY
     Route: 048
     Dates: start: 20040902
  3. PICIBANIL [Concomitant]

REACTIONS (1)
  - URINARY RETENTION [None]
